FAERS Safety Report 14159176 (Version 2)
Quarter: 2017Q4

REPORT INFORMATION
  Report Type: Spontaneous
  Country: CN (occurrence: CN)
  Receive Date: 20171103
  Receipt Date: 20171109
  Transmission Date: 20180321
  Serious: Yes (Hospitalization)
  Sender: FDA-Public Use
  Company Number: CN-BAXTER-2017BAX037110

PATIENT
  Age: 45 Year
  Sex: Female
  Weight: 45 kg

DRUGS (3)
  1. PERITONEAL DIALYSIS SOLUTION (LACTATE- G2.5%) [Suspect]
     Active Substance: CALCIUM CHLORIDE\DEXTROSE\MAGNESIUM CHLORIDE\SODIUM CHLORIDE\SODIUM LACTATE
     Indication: AZOTAEMIA
     Dosage: 1 BAG
     Route: 033
     Dates: start: 2010
  2. PERITONEAL DIALYSIS SOLUTION (LACTATE- G1.5%) [Suspect]
     Active Substance: CALCIUM CHLORIDE\DEXTROSE\MAGNESIUM CHLORIDE\SODIUM CHLORIDE\SODIUM LACTATE
     Indication: AZOTAEMIA
     Dosage: 3 BAGS
     Route: 033
     Dates: start: 2000
  3. PERITONEAL DIALYSIS SOLUTION (LACTATE- G1.5%) [Suspect]
     Active Substance: CALCIUM CHLORIDE\DEXTROSE\MAGNESIUM CHLORIDE\SODIUM CHLORIDE\SODIUM LACTATE
     Dosage: 3 BAGS
     Route: 033
     Dates: start: 2005

REACTIONS (8)
  - Headache [Recovering/Resolving]
  - Incorrect dose administered [Unknown]
  - Abdominal pain [Recovering/Resolving]
  - Deformity [Unknown]
  - Communication disorder [Unknown]
  - Dizziness [Recovering/Resolving]
  - Nightmare [Recovering/Resolving]
  - Blood pressure increased [Recovering/Resolving]

NARRATIVE: CASE EVENT DATE: 201708
